FAERS Safety Report 9897831 (Version 1)
Quarter: 2014Q1

REPORT INFORMATION
  Report Type: Spontaneous
  Country: DE (occurrence: DE)
  Receive Date: 20140214
  Receipt Date: 20140214
  Transmission Date: 20141002
  Serious: Yes (Other)
  Sender: FDA-Public Use
  Company Number: DE-DRREDDYS-GER/GER/14/0038089

PATIENT
  Age: 25 Year
  Sex: Female
  Weight: 48 kg

DRUGS (3)
  1. LAMOTRIGINE [Suspect]
     Indication: DEPRESSION
     Dosage: 150 [MG/D ]
     Route: 048
     Dates: start: 20120525, end: 20130207
  2. ESCITALOPRAM [Suspect]
     Indication: DEPRESSION
     Dosage: 20 [MG/D ]
     Route: 048
     Dates: start: 20120525, end: 20130207
  3. FEMIBION SCHWANGERSCHAFT 1 [Concomitant]
     Indication: PROPHYLAXIS OF NEURAL TUBE DEFECT
     Dosage: 0.8 [MG/D ]
     Route: 048
     Dates: end: 20130207

REACTIONS (2)
  - Premature labour [Unknown]
  - Exposure during pregnancy [Unknown]
